FAERS Safety Report 18285056 (Version 2)
Quarter: 2020Q3

REPORT INFORMATION
  Report Type: Spontaneous
  Country: NL (occurrence: NL)
  Receive Date: 20200919
  Receipt Date: 20200925
  Transmission Date: 20201103
  Serious: Yes (Other)
  Sender: FDA-Public Use
  Company Number: NL-SUN PHARMACEUTICAL INDUSTRIES LTD-2020RR-261501

PATIENT
  Sex: Female

DRUGS (10)
  1. OMEPRAZOL CAPSULE MSR 20MG / BRAND NAME NOT SPECIFIEDOMEPRAZOL CAPS... [Suspect]
     Active Substance: OMEPRAZOLE
     Indication: PROPHYLAXIS
     Dosage: 40 MILLIGRAM, TID
     Route: 065
     Dates: start: 202003, end: 20200401
  2. ROSUVASTATINE TABLET FO 10MG (ALS CA?ZOUT) / BRAND NAME NOT SPECIFI... [Concomitant]
     Indication: PRODUCT USED FOR UNKNOWN INDICATION
     Dosage: FILM?WRAPPED TABLET, 10 MG (MILLIGRAMS) ()
     Route: 065
  3. ACETYLSALICYLZUUR TABLET  80MG / BRAND NAME NOT SPECIFIEDACETYLSALI... [Concomitant]
     Indication: PRODUCT USED FOR UNKNOWN INDICATION
     Dosage: TABLET, 80 MG (MILLIGRAM) ()
     Route: 065
  4. METOPROLOL TABLET MGA  25MG (SUCCINAAT) / BRAND NAME NOT SPECIFIEDM... [Concomitant]
     Indication: PRODUCT USED FOR UNKNOWN INDICATION
     Dosage: TABLET WITH REGULATED RELEASE, 25 MG (MILLIGRAMS) ()
     Route: 065
  5. CYANOCOBALAMINE TABLET 1000UG / BRAND NAME NOT SPECIFIEDCYANOCOBALA... [Concomitant]
     Indication: PRODUCT USED FOR UNKNOWN INDICATION
     Dosage: TABLET, 1000 ?G (MICROGRAM)
     Route: 065
  6. PARACETAMOL TABLET  500MG / BRAND NAME NOT SPECIFIEDPARACETAMOL TAB... [Concomitant]
     Indication: PRODUCT USED FOR UNKNOWN INDICATION
     Dosage: TABLET, 500 MG (MILLIGRAM) ()
     Route: 065
  7. INSULINE GLARGINE 100E/ML INJVLST / LANTUS INJ 100E/ML PATROON 3MLL... [Concomitant]
     Indication: PRODUCT USED FOR UNKNOWN INDICATION
     Dosage: INJECTION FLUID, 100 UNITS/ML (UNITS PER MILLILITER) ()
     Route: 065
  8. ESOMEPRAZOLE. [Suspect]
     Active Substance: ESOMEPRAZOLE MAGNESIUM
     Indication: PROPHYLAXIS
     Dosage: 1 X PER DAY 1 PIECE, UP TO 2 TIMES A DAY 2 PIECES
     Route: 065
     Dates: start: 202004, end: 20200827
  9. FUROSEMIDE TABLET 20MG / BRAND NAME NOT SPECIFIEDFUROSEMIDE TABLET ... [Concomitant]
     Indication: PRODUCT USED FOR UNKNOWN INDICATION
     Dosage: TABLET, 20 MG (MILLIGRAM) ()
     Route: 065
  10. INSULINE ASPART INJVLST 100E/ML / NOVORAPID INJVLST 100E/ML FLACON ... [Concomitant]
     Indication: PRODUCT USED FOR UNKNOWN INDICATION
     Dosage: INJECTION FLUID, 100 UNITS/ML (UNITS PER MILLILITER) ()
     Route: 065

REACTIONS (2)
  - Angioedema [Recovered/Resolved]
  - Dysgeusia [Recovered/Resolved]
